FAERS Safety Report 10360904 (Version 1)
Quarter: 2014Q3

REPORT INFORMATION
  Report Type: Spontaneous
  Country: DE (occurrence: DE)
  Receive Date: 20140804
  Receipt Date: 20140804
  Transmission Date: 20150326
  Serious: Yes (Hospitalization)
  Sender: FDA-Public Use
  Company Number: DE-BAUSCH-BL-2014-003571

PATIENT
  Age: 28 Year
  Sex: Male

DRUGS (2)
  1. NAPHAZOLINE [Suspect]
     Active Substance: NAPHAZOLINE\NAPHAZOLINE HYDROCHLORIDE
  2. NAPHAZOLINE [Suspect]
     Active Substance: NAPHAZOLINE\NAPHAZOLINE HYDROCHLORIDE
     Indication: POSTOPERATIVE CARE

REACTIONS (2)
  - Drug dispensing error [Recovering/Resolving]
  - Stress cardiomyopathy [Recovering/Resolving]
